FAERS Safety Report 4660183-5 (Version None)
Quarter: 2005Q2

REPORT INFORMATION
  Report Type: 
  Country: None (occurrence: None)
  Receive Date: 20050427
  Receipt Date: 20050203
  Transmission Date: 20051028
  Serious: No
  Sender: FDA-Public Use
  Company Number: 212216

PATIENT
  Age: 50 Year
  Sex: Female
  Weight: 85 kg

DRUGS (6)
  1. XOLAIR [Suspect]
     Indication: ASTHMA
     Dosage: 150 MG, Q4W
     Dates: start: 20030918
  2. SINGULAIR [Concomitant]
  3. SEREVENT [Concomitant]
  4. PREDNISONE [Concomitant]
  5. QVAR (BECLOMETHASONE DIPROPIONATE) [Concomitant]
  6. DURATUSS (GUAIFENESIN, PSEUDOEPHEDRINE HYDROCHLORIDE) [Concomitant]

REACTIONS (1)
  - HYPERSENSITIVITY [None]
